FAERS Safety Report 6701714-0 (Version None)
Quarter: 2010Q2

REPORT INFORMATION
  Report Type: 
  Country: None (occurrence: None)
  Receive Date: 20100429
  Receipt Date: 20100419
  Transmission Date: 20101027
  Serious: Yes (Hospitalization)
  Sender: FDA-Public Use
  Company Number: PHHY2010TR24634

PATIENT

DRUGS (1)
  1. SANDOSTATIN LAR [Suspect]
     Indication: ACROMEGALY
     Dosage: 30 MG/28 DAYS
     Route: 030
     Dates: start: 20081231, end: 20100401

REACTIONS (2)
  - PITUITARY TUMOUR REMOVAL [None]
  - SURGERY [None]
